FAERS Safety Report 4545735-5 (Version None)
Quarter: 2005Q1

REPORT INFORMATION
  Report Type: 
  Country: None (occurrence: None)
  Receive Date: 20050104
  Receipt Date: 20050104
  Transmission Date: 20050727
  Serious: Yes (Hospitalization)
  Sender: FDA-Public Use
  Company Number: None

PATIENT
  Sex: Female
  Weight: 79 kg

DRUGS (10)
  1. CRESTOR [Suspect]
     Indication: CORONARY ARTERY DISEASE
     Dosage: 1 TABLET DAILY
     Dates: start: 20040915
  2. CRESTOR [Suspect]
     Indication: HYPERLIPIDAEMIA
     Dosage: 1 TABLET DAILY
     Dates: start: 20040915
  3. LEVOTHYROXINE SODIUM [Concomitant]
  4. ACTOS [Concomitant]
  5. GLIPIZIDE [Concomitant]
  6. LISINOPRIL [Concomitant]
  7. COREG [Concomitant]
  8. ZOLOFT [Concomitant]
  9. OMEPRAZOLE [Concomitant]
  10. PLAVIX [Concomitant]

REACTIONS (3)
  - MEDICATION ERROR [None]
  - NEUTROPENIA [None]
  - THROMBOCYTOPENIA [None]
